FAERS Safety Report 7722061-4 (Version None)
Quarter: 2011Q3

REPORT INFORMATION
  Report Type: 
  Country: None (occurrence: None)
  Receive Date: 20110831
  Receipt Date: 20110825
  Transmission Date: 20111222
  Serious: Yes (Hospitalization, Other)
  Sender: FDA-Public Use
  Company Number: US-ABBOTT-11P-163-0711959-00

PATIENT
  Sex: Female
  Weight: 113.5 kg

DRUGS (2)
  1. TEMODAR [Suspect]
     Indication: PRODUCT USED FOR UNKNOWN INDICATION
  2. HUMIRA [Suspect]
     Indication: PSORIASIS
     Route: 058
     Dates: start: 20100401, end: 20110401

REACTIONS (29)
  - OVARIAN CYST [None]
  - METASTASES TO BLADDER [None]
  - PSORIASIS [None]
  - ABDOMINAL PAIN [None]
  - ALOPECIA [None]
  - VAGINAL NEOPLASM [None]
  - MALIGNANT MELANOMA [None]
  - GYNAECOLOGICAL EXAMINATION ABNORMAL [None]
  - CONSTIPATION [None]
  - VAGINAL DISCHARGE [None]
  - DISCOMFORT [None]
  - SQUAMOUS CELL CARCINOMA [None]
  - DIARRHOEA [None]
  - ASTHENIA [None]
  - WEIGHT DECREASED [None]
  - UNEVALUABLE EVENT [None]
  - HEPATITIS [None]
  - NEOPLASM MALIGNANT [None]
  - ABDOMINAL PAIN UPPER [None]
  - METASTASES TO LUNG [None]
  - METASTASES TO LYMPH NODES [None]
  - VAGINITIS BACTERIAL [None]
  - HOT FLUSH [None]
  - FATIGUE [None]
  - CERVIX DISORDER [None]
  - PULMONARY EMBOLISM [None]
  - URINARY INCONTINENCE [None]
  - MOOD SWINGS [None]
  - NASOPHARYNGITIS [None]
